FAERS Safety Report 25847060 (Version 1)
Quarter: 2025Q3

REPORT INFORMATION
  Report Type: Spontaneous
  Country: EU (occurrence: EU)
  Receive Date: 20250925
  Receipt Date: 20250925
  Transmission Date: 20251021
  Serious: Yes (Hospitalization, Other)
  Sender: AUROBINDO
  Company Number: EU-AFSSAPS-TO2025001138

PATIENT
  Age: 63 Year
  Sex: Female
  Weight: 49 kg

DRUGS (3)
  1. LANSOPRAZOLE [Suspect]
     Active Substance: LANSOPRAZOLE
     Indication: Gastrooesophageal reflux disease
     Dosage: 30 MILLIGRAM, ONCE A DAY
     Route: 048
     Dates: end: 20250714
  2. RYBREVANT [Concomitant]
     Active Substance: AMIVANTAMAB-VMJW
     Indication: Lung adenocarcinoma
     Route: 042
     Dates: start: 20250409, end: 20250702
  3. PEMETREXED [Concomitant]
     Active Substance: PEMETREXED
     Indication: Lung adenocarcinoma
     Route: 042
     Dates: start: 20250409, end: 20250702

REACTIONS (3)
  - Status epilepticus [Recovered/Resolved]
  - Hypokalaemia [Recovering/Resolving]
  - Hypocalcaemia [Recovering/Resolving]

NARRATIVE: CASE EVENT DATE: 20250714
